FAERS Safety Report 5877512-7 (Version None)
Quarter: 2008Q3

REPORT INFORMATION
  Report Type: 
  Country: None (occurrence: None)
  Receive Date: 20080909
  Receipt Date: 20080905
  Transmission Date: 20090109
  Serious: Yes (Death, Hospitalization, Other)
  Sender: FDA-Public Use
  Company Number: 2008SP017926

PATIENT
  Age: 53 Year
  Sex: Male

DRUGS (2)
  1. PEG-INTRON [Suspect]
     Indication: HEPATITIS C
     Dosage: SC
     Route: 058
     Dates: start: 20080701
  2. RIBASPHERE [Suspect]
     Indication: HEPATITIS C
     Dosage: PO
     Route: 048
     Dates: start: 20080701

REACTIONS (9)
  - ABDOMINAL INFECTION [None]
  - AGGRESSION [None]
  - CARDIAC FAILURE [None]
  - HEPATIC FAILURE [None]
  - INFLUENZA [None]
  - OCULAR ICTERUS [None]
  - ORGAN FAILURE [None]
  - RENAL FAILURE [None]
  - STAPHYLOCOCCAL INFECTION [None]
